FAERS Safety Report 22393572 (Version 1)
Quarter: 2023Q2

REPORT INFORMATION
  Report Type: Spontaneous
  Country: GB (occurrence: GB)
  Receive Date: 20230601
  Receipt Date: 20230601
  Transmission Date: 20230722
  Serious: Yes (Death, Other)
  Sender: FDA-Public Use
  Company Number: GB-ADVANZ PHARMA-202305004199

PATIENT

DRUGS (2)
  1. PREDNISOLONE [Suspect]
     Active Substance: PREDNISOLONE
     Indication: Autoimmune disorder
     Dosage: UNK, 20-60 MG, COMBINATION WITH DMARDS IN 6 PATIENTS
  2. PREDNISOLONE [Suspect]
     Active Substance: PREDNISOLONE
     Indication: Rheumatic disorder
     Dosage: UNK, 20-60 MG, MONOTHERAPY (HIGH DOSE) IN 3 PATIENTS

REACTIONS (2)
  - Pneumocystis jirovecii pneumonia [Fatal]
  - Pneumocystis jirovecii pneumonia [Unknown]
